FAERS Safety Report 8516515-0 (Version None)
Quarter: 2012Q3

REPORT INFORMATION
  Report Type: 
  Country: None (occurrence: None)
  Receive Date: 20120711
  Receipt Date: 20120711
  Transmission Date: 20120928
  Serious: Yes (Other)
  Sender: FDA-Public Use
  Company Number: None

PATIENT
  Age: 58 Year
  Sex: Male

DRUGS (2)
  1. RIBAVIRIN [Suspect]
     Indication: HEPATITIS C
     Dosage: 600MG BID PO
     Route: 048
     Dates: start: 20120617
  2. PEGASYS [Suspect]
     Indication: HEPATITIS C
     Dosage: 180MCG QW SQ
     Route: 058
     Dates: start: 20120617

REACTIONS (1)
  - CHROMATURIA [None]
